FAERS Safety Report 4829667-0 (Version None)
Quarter: 2005Q4

REPORT INFORMATION
  Report Type: 
  Country: None (occurrence: None)
  Receive Date: 20051116
  Receipt Date: 20050930
  Transmission Date: 20060501
  Serious: Yes (Hospitalization)
  Sender: FDA-Public Use
  Company Number: US-MERCK-0510USA00694

PATIENT
  Age: 60 Year
  Sex: Male
  Weight: 109 kg

DRUGS (6)
  1. VIOXX [Suspect]
     Indication: BACK PAIN
     Route: 048
     Dates: start: 20000601, end: 20001223
  2. CLEOCIN [Concomitant]
     Route: 048
  3. IMDUR [Concomitant]
     Route: 048
  4. NITROQUICK [Concomitant]
     Route: 065
  5. PREVACID [Concomitant]
     Route: 048
  6. PRILOSEC [Concomitant]
     Route: 048

REACTIONS (2)
  - ARTERIAL OCCLUSIVE DISEASE [None]
  - MYOCARDIAL INFARCTION [None]
